FAERS Safety Report 16031082 (Version 1)
Quarter: 2019Q1

REPORT INFORMATION
  Report Type: Spontaneous
  Country: JP (occurrence: JP)
  Receive Date: 20190304
  Receipt Date: 20190304
  Transmission Date: 20190418
  Serious: Yes (Life-Threatening, Hospitalization, Other)
  Sender: FDA-Public Use
  Company Number: JP-PFIZER INC-2019088581

PATIENT
  Age: 83 Year
  Sex: Female
  Weight: 50.9 kg

DRUGS (18)
  1. RHEUMATREX [Suspect]
     Active Substance: METHOTREXATE SODIUM
     Indication: RHEUMATOID ARTHRITIS
     Dosage: 8 MG, WEEKLY
     Route: 048
     Dates: end: 20181013
  2. RINDERON VG [Concomitant]
     Active Substance: BETAMETHASONE VALERATE\GENTAMICIN SULFATE
  3. HERBESSER [Concomitant]
     Active Substance: DILTIAZEM HYDROCHLORIDE
  4. GASMOTIN [Concomitant]
     Active Substance: MOSAPRIDE CITRATE
  5. LOXOPROFEN [Concomitant]
     Active Substance: LOXOPROFEN
  6. TEPRENONE [Concomitant]
     Active Substance: TEPRENONE
  7. EDIROL [Concomitant]
     Active Substance: ELDECALCITOL
  8. MOHRUS [Concomitant]
     Active Substance: KETOPROFEN
  9. BENET [Concomitant]
     Active Substance: RISEDRONATE SODIUM
  10. LIPITOR [Concomitant]
     Active Substance: ATORVASTATIN CALCIUM
  11. MAINTATE [Concomitant]
     Active Substance: BISOPROLOL FUMARATE
  12. TAKEPRON [Concomitant]
     Active Substance: LANSOPRAZOLE
  13. PREDNISOLONE. [Concomitant]
     Active Substance: PREDNISOLONE
     Dosage: 4 MG, UNK
  14. LANOCONAZOLE IWAKI [Concomitant]
  15. WARFARINA [WARFARIN] [Concomitant]
  16. WARFARINA [WARFARIN] [Concomitant]
     Dosage: UNK
  17. FOLIAMIN [Concomitant]
     Active Substance: FOLIC ACID
  18. LYRICA [Concomitant]
     Active Substance: PREGABALIN

REACTIONS (9)
  - Inappropriate antidiuretic hormone secretion [Unknown]
  - Neoplasm malignant [Unknown]
  - Pulmonary mass [Unknown]
  - Oral candidiasis [Unknown]
  - Lymphoproliferative disorder [Recovering/Resolving]
  - Hyponatraemia [Unknown]
  - Malaise [Unknown]
  - Pyrexia [Recovered/Resolved]
  - Abdominal neoplasm [Unknown]

NARRATIVE: CASE EVENT DATE: 20181008
